FAERS Safety Report 4416923-3 (Version None)
Quarter: 2004Q3

REPORT INFORMATION
  Report Type: 
  Country: None (occurrence: None)
  Receive Date: 20040804
  Receipt Date: 20040804
  Transmission Date: 20050211
  Serious: Yes (Hospitalization)
  Sender: FDA-Public Use
  Company Number: None

PATIENT
  Sex: Male
  Weight: 72.6 kg

DRUGS (12)
  1. ADRIAMYCIN PFS [Suspect]
     Indication: SPINDLE CELL SARCOMA
     Dosage: EVERY 4 WEEK IV INTRAVENOUS
     Route: 042
     Dates: start: 20040726, end: 20040823
  2. CISPLATIN [Suspect]
     Dosage: MITOC IV INTRAVENOUS
     Route: 042
  3. ZYRTEC [Concomitant]
  4. ZESTRIL [Concomitant]
  5. HYDROCHLOROTHIAZIDE [Concomitant]
  6. HYTRIN [Concomitant]
  7. ASPIRIN [Concomitant]
  8. MULTI-VITAMIN [Concomitant]
  9. FLEXERIL [Concomitant]
  10. NABUMETONE [Concomitant]
  11. PAXIL [Concomitant]
  12. PROTONIX [Concomitant]

REACTIONS (7)
  - CHEST PAIN [None]
  - DIZZINESS [None]
  - FALL [None]
  - HYPOKALAEMIA [None]
  - HYPONATRAEMIA [None]
  - THROMBOCYTOPENIA [None]
  - THROMBOSIS [None]
